FAERS Safety Report 5679726-8 (Version None)
Quarter: 2008Q1

REPORT INFORMATION
  Report Type: 
  Country: None (occurrence: None)
  Receive Date: 20080321
  Receipt Date: 20080310
  Transmission Date: 20080703
  Serious: Yes (Hospitalization)
  Sender: FDA-Public Use
  Company Number: CIP08000203

PATIENT
  Age: 67 Year
  Sex: Female

DRUGS (6)
  1. ACTONEL [Suspect]
     Indication: OSTEOPOROSIS
     Dosage: 2.5 MG, DAILY, ORAL
     Route: 048
     Dates: start: 20050817, end: 20071225
  2. PLATBIT (ALFACALCIDOL) [Concomitant]
  3. ELSPRI (ASPARTIC ACID) [Concomitant]
  4. EPEL (EPERISONE HYDROCHLORIDE) [Concomitant]
  5. BLOPRESS (CANDESARAN CILEXETIL) [Concomitant]
  6. ETODOLAC [Concomitant]

REACTIONS (9)
  - CELLULITIS [None]
  - IMPAIRED HEALING [None]
  - MYOSITIS [None]
  - OEDEMA MOUTH [None]
  - ORAL PAIN [None]
  - OSTEOMYELITIS [None]
  - PURULENT DISCHARGE [None]
  - TOOTH EXTRACTION [None]
  - TRISMUS [None]
